FAERS Safety Report 9201237 (Version 3)
Quarter: 2013Q2

REPORT INFORMATION
  Report Type: Spontaneous
  Country: PH (occurrence: PH)
  Receive Date: 20130401
  Receipt Date: 20130405
  Transmission Date: 20140414
  Serious: Yes (Hospitalization)
  Sender: FDA-Public Use
  Company Number: PHHY2013PH030163

PATIENT
  Sex: Female
  Weight: 59 kg

DRUGS (1)
  1. ACLASTA [Suspect]
     Indication: OSTEOPOROSIS
     Dosage: ANNUALLY
     Route: 042
     Dates: start: 20130322

REACTIONS (7)
  - Pneumonia [Unknown]
  - Pyrexia [Unknown]
  - Blood glucose increased [Unknown]
  - Loss of consciousness [Unknown]
  - Blood pressure increased [Unknown]
  - Vomiting [Unknown]
  - Asthenia [Unknown]
